FAERS Safety Report 10090695 (Version 1)
Quarter: 2014Q2

REPORT INFORMATION
  Report Type: Spontaneous
  Country: PT (occurrence: PT)
  Receive Date: 20140421
  Receipt Date: 20140421
  Transmission Date: 20141212
  Serious: Yes (Death)
  Sender: FDA-Public Use
  Company Number: PT-ACTAVIS-2014-07575

PATIENT
  Age: 42 Year
  Sex: Female
  Weight: 108 kg

DRUGS (5)
  1. PACLITAXEL ACTAVIS [Suspect]
     Indication: BREAST CANCER
     Dosage: 160 MG, CYCLICAL;160 MG IN 250 ML NACL IN 1 HOUR INFUSION WEEKLY CYCLES
     Route: 042
     Dates: start: 20140319, end: 20140319
  2. ONDANSETROM [Concomitant]
     Indication: PRODUCT USED FOR UNKNOWN INDICATION
     Dosage: UNK
     Route: 042
     Dates: start: 20140319
  3. RANITIDINA [Concomitant]
     Indication: PRODUCT USED FOR UNKNOWN INDICATION
     Dosage: UNK
     Route: 042
     Dates: start: 20140319
  4. CLEMASTINE [Concomitant]
     Indication: PRODUCT USED FOR UNKNOWN INDICATION
     Dosage: UNK
     Route: 042
     Dates: start: 20140319
  5. DEXAMETASONA                       /00016001/ [Concomitant]
     Indication: PRODUCT USED FOR UNKNOWN INDICATION
     Dosage: UNK
     Route: 042
     Dates: start: 20140319

REACTIONS (1)
  - Anaphylactic shock [Fatal]
